FAERS Safety Report 9168918 (Version 1)
Quarter: 2013Q1

REPORT INFORMATION
  Report Type: Spontaneous
  Country: US (occurrence: US)
  Receive Date: 20130318
  Receipt Date: 20130318
  Transmission Date: 20140127
  Serious: Yes (Other)
  Sender: FDA-Public Use
  Company Number: US-PFIZER INC-2013086358

PATIENT
  Age: 60 Year
  Sex: Male
  Weight: 69.84 kg

DRUGS (3)
  1. CELEBREX [Suspect]
     Indication: ARTHRITIS
     Dosage: 200 MG, 1X/DAY
     Dates: start: 20130228, end: 20130302
  2. TIZANIDINE [Concomitant]
     Indication: MUSCLE DISORDER
     Dosage: 2 MG, AS NEEDED
  3. DIAZEPAM [Concomitant]
     Indication: SLEEP DISORDER
     Dosage: 5 MG, WEEKLY

REACTIONS (1)
  - Vitreous detachment [Recovering/Resolving]
